FAERS Safety Report 5869040-X (Version None)
Quarter: 2008Q3

REPORT INFORMATION
  Report Type: 
  Country: None (occurrence: None)
  Receive Date: 20080903
  Receipt Date: 20080827
  Transmission Date: 20090109
  Serious: Yes (Hospitalization)
  Sender: FDA-Public Use
  Company Number: B0516918A

PATIENT
  Age: 67 Year
  Sex: Female
  Weight: 90 kg

DRUGS (6)
  1. AVANDAMET [Suspect]
     Indication: TYPE 2 DIABETES MELLITUS
     Dosage: 2TAB PER DAY
     Route: 048
     Dates: start: 20061001, end: 20080312
  2. DIAMICRON [Concomitant]
     Indication: DIABETES MELLITUS
     Dosage: 30MG PER DAY
     Route: 048
  3. COUMADIN [Concomitant]
     Indication: PHLEBITIS
     Dosage: 3MG PER DAY
     Route: 048
  4. ATENOLOL [Concomitant]
     Indication: HYPERTENSION
     Dosage: 50MG TWICE PER DAY
     Route: 048
  5. LASIX [Concomitant]
     Indication: HYPERTENSION
     Dosage: 40MG PER DAY
     Route: 048
  6. MICARDIS HCT [Concomitant]
     Indication: HYPERTENSION
     Dosage: 80MG PER DAY
     Route: 048

REACTIONS (16)
  - ACUTE PULMONARY OEDEMA [None]
  - BLOOD CHOLESTEROL INCREASED [None]
  - CARDIAC FAILURE [None]
  - DIZZINESS [None]
  - FLUID OVERLOAD [None]
  - HAEMOGLOBIN DECREASED [None]
  - HYPERSENSITIVITY [None]
  - MUSCULAR WEAKNESS [None]
  - MYALGIA [None]
  - OEDEMA [None]
  - PLEURAL EFFUSION [None]
  - PRURITUS [None]
  - RASH [None]
  - RENAL FAILURE ACUTE [None]
  - VISION BLURRED [None]
  - WEIGHT INCREASED [None]
